FAERS Safety Report 11860092 (Version 1)
Quarter: 2015Q4

REPORT INFORMATION
  Report Type: Spontaneous
  Country: US (occurrence: US)
  Receive Date: 20151222
  Receipt Date: 20151222
  Transmission Date: 20160305
  Serious: No
  Sender: FDA-Public Use
  Company Number: US-MISSION PHARMACAL COMPANY-1045770

PATIENT
  Age: 51 Year
  Sex: Male

DRUGS (1)
  1. THIOLA [Suspect]
     Active Substance: TIOPRONIN
     Indication: CALCULUS URINARY
     Route: 065
     Dates: start: 20151101

REACTIONS (3)
  - Calculus bladder [Not Recovered/Not Resolved]
  - Diarrhoea [Unknown]
  - Nephrolithiasis [Not Recovered/Not Resolved]
